FAERS Safety Report 6839986-4 (Version None)
Quarter: 2010Q2

REPORT INFORMATION
  Report Type: 
  Country: None (occurrence: None)
  Receive Date: 20100629
  Receipt Date: 20100526
  Transmission Date: 20101027
  Serious: No
  Sender: FDA-Public Use
  Company Number: US-WYE-H15405010

PATIENT
  Age: 69 Year
  Sex: Female
  Weight: 98.97 kg

DRUGS (11)
  1. PRISTIQ [Suspect]
     Indication: DEPRESSION
     Dosage: 50 MG 1X PER 1 DAY, ORAL
     Route: 048
     Dates: start: 20100525
  2. PRILOSEC (OMEPRAZOLE) [Concomitant]
  3. METOPROLOL SUCCINATE [Concomitant]
  4. GLUCOSAMINE (GLUCOSAMINE) [Concomitant]
  5. CALCIUM (CALCIUM) [Concomitant]
  6. MULTIVITAMINS (ASCORBIC ACID/ERGOCALCIFEROL/FOLIC ACID/NICOTINAMIDE/PA [Concomitant]
  7. LOVAZA [Concomitant]
  8. GABAPENTIN [Concomitant]
  9. LYRICA [Concomitant]
  10. ASCORBIC ACID [Concomitant]
  11. CLONAZEPAM [Concomitant]

REACTIONS (4)
  - CHEST DISCOMFORT [None]
  - FATIGUE [None]
  - PAIN [None]
  - UNEVALUABLE EVENT [None]
